FAERS Safety Report 25746712 (Version 4)
Quarter: 2025Q3

REPORT INFORMATION
  Report Type: Report from Study
  Country: EU (occurrence: EU)
  Receive Date: 20250901
  Receipt Date: 20250912
  Transmission Date: 20251021
  Serious: Yes (Death, Hospitalization, Other)
  Sender: MYLAN
  Company Number: EU-SA-2025SA024770

PATIENT
  Age: 69 Year
  Sex: Male
  Weight: 70 kg

DRUGS (56)
  1. POMALIDOMIDE [Suspect]
     Active Substance: POMALIDOMIDE
     Indication: Plasma cell myeloma refractory
     Dosage: 4 MG, QD
     Dates: start: 20240628, end: 20240718
  2. POMALIDOMIDE [Suspect]
     Active Substance: POMALIDOMIDE
     Dosage: 4 MG, QD
     Dates: start: 20240628, end: 20240718
  3. POMALIDOMIDE [Suspect]
     Active Substance: POMALIDOMIDE
     Dosage: 4 MG, QD
     Route: 065
     Dates: start: 20240628, end: 20240718
  4. POMALIDOMIDE [Suspect]
     Active Substance: POMALIDOMIDE
     Dosage: 4 MG, QD
     Route: 065
     Dates: start: 20240628, end: 20240718
  5. POMALIDOMIDE [Suspect]
     Active Substance: POMALIDOMIDE
     Dosage: 4 MG, QD
     Dates: start: 20240726, end: 20240815
  6. POMALIDOMIDE [Suspect]
     Active Substance: POMALIDOMIDE
     Dosage: 4 MG, QD
     Dates: start: 20240726, end: 20240815
  7. POMALIDOMIDE [Suspect]
     Active Substance: POMALIDOMIDE
     Dosage: 4 MG, QD
     Route: 065
     Dates: start: 20240726, end: 20240815
  8. POMALIDOMIDE [Suspect]
     Active Substance: POMALIDOMIDE
     Dosage: 4 MG, QD
     Route: 065
     Dates: start: 20240726, end: 20240815
  9. POMALIDOMIDE [Suspect]
     Active Substance: POMALIDOMIDE
     Dosage: 4 MG, QD
     Dates: start: 20240823, end: 20240908
  10. POMALIDOMIDE [Suspect]
     Active Substance: POMALIDOMIDE
     Dosage: 4 MG, QD
     Route: 065
     Dates: start: 20240823, end: 20240908
  11. POMALIDOMIDE [Suspect]
     Active Substance: POMALIDOMIDE
     Dosage: 4 MG, QD
     Dates: start: 20240823, end: 20240908
  12. POMALIDOMIDE [Suspect]
     Active Substance: POMALIDOMIDE
     Dosage: 4 MG, QD
     Route: 065
     Dates: start: 20240823, end: 20240908
  13. ISATUXIMAB [Suspect]
     Active Substance: ISATUXIMAB
     Indication: Plasma cell myeloma refractory
     Dosage: 800 MILLIGRAM, QW
     Dates: start: 20240628, end: 20240719
  14. ISATUXIMAB [Suspect]
     Active Substance: ISATUXIMAB
     Dosage: 800 MILLIGRAM, QW
     Dates: start: 20240628, end: 20240719
  15. ISATUXIMAB [Suspect]
     Active Substance: ISATUXIMAB
     Dosage: 800 MILLIGRAM, QW
     Route: 065
     Dates: start: 20240628, end: 20240719
  16. ISATUXIMAB [Suspect]
     Active Substance: ISATUXIMAB
     Dosage: 800 MILLIGRAM, QW
     Route: 065
     Dates: start: 20240628, end: 20240719
  17. ISATUXIMAB [Suspect]
     Active Substance: ISATUXIMAB
     Dosage: 800 MILLIGRAM, BIWEEKLY (1600 MILLIGRAM, QW, 800 MG, BIW)
     Dates: start: 20240726, end: 20240809
  18. ISATUXIMAB [Suspect]
     Active Substance: ISATUXIMAB
     Dosage: 800 MILLIGRAM, BIWEEKLY (1600 MILLIGRAM, QW, 800 MG, BIW)
     Dates: start: 20240726, end: 20240809
  19. ISATUXIMAB [Suspect]
     Active Substance: ISATUXIMAB
     Dosage: 800 MILLIGRAM, BIWEEKLY (1600 MILLIGRAM, QW, 800 MG, BIW)
     Route: 065
     Dates: start: 20240726, end: 20240809
  20. ISATUXIMAB [Suspect]
     Active Substance: ISATUXIMAB
     Dosage: 800 MILLIGRAM, BIWEEKLY (1600 MILLIGRAM, QW, 800 MG, BIW)
     Route: 065
     Dates: start: 20240726, end: 20240809
  21. ISATUXIMAB [Suspect]
     Active Substance: ISATUXIMAB
     Dosage: 800 MILLIGRAM, BIWEEKLY (1600 MILLIGRAM, QW, 800 MG, BIW)
     Dates: start: 20240823, end: 20240906
  22. ISATUXIMAB [Suspect]
     Active Substance: ISATUXIMAB
     Dosage: 800 MILLIGRAM, BIWEEKLY (1600 MILLIGRAM, QW, 800 MG, BIW)
     Route: 065
     Dates: start: 20240823, end: 20240906
  23. ISATUXIMAB [Suspect]
     Active Substance: ISATUXIMAB
     Dosage: 800 MILLIGRAM, BIWEEKLY (1600 MILLIGRAM, QW, 800 MG, BIW)
     Dates: start: 20240823, end: 20240906
  24. ISATUXIMAB [Suspect]
     Active Substance: ISATUXIMAB
     Dosage: 800 MILLIGRAM, BIWEEKLY (1600 MILLIGRAM, QW, 800 MG, BIW)
     Route: 065
     Dates: start: 20240823, end: 20240906
  25. DEXAMETHASONE [Suspect]
     Active Substance: DEXAMETHASONE
     Indication: Plasma cell myeloma refractory
     Dosage: 40 MILLIGRAM, QW
     Dates: start: 20240628, end: 20240719
  26. DEXAMETHASONE [Suspect]
     Active Substance: DEXAMETHASONE
     Dosage: 40 MILLIGRAM, QW
     Dates: start: 20240628, end: 20240719
  27. DEXAMETHASONE [Suspect]
     Active Substance: DEXAMETHASONE
     Dosage: 40 MILLIGRAM, QW
     Route: 065
     Dates: start: 20240628, end: 20240719
  28. DEXAMETHASONE [Suspect]
     Active Substance: DEXAMETHASONE
     Dosage: 40 MILLIGRAM, QW
     Route: 065
     Dates: start: 20240628, end: 20240719
  29. DEXAMETHASONE [Suspect]
     Active Substance: DEXAMETHASONE
     Dosage: 40 MILLIGRAM, QW
     Dates: start: 20240726, end: 20240815
  30. DEXAMETHASONE [Suspect]
     Active Substance: DEXAMETHASONE
     Dosage: 40 MILLIGRAM, QW
     Dates: start: 20240726, end: 20240815
  31. DEXAMETHASONE [Suspect]
     Active Substance: DEXAMETHASONE
     Dosage: 40 MILLIGRAM, QW
     Route: 065
     Dates: start: 20240726, end: 20240815
  32. DEXAMETHASONE [Suspect]
     Active Substance: DEXAMETHASONE
     Dosage: 40 MILLIGRAM, QW
     Route: 065
     Dates: start: 20240726, end: 20240815
  33. DEXAMETHASONE [Suspect]
     Active Substance: DEXAMETHASONE
     Dosage: 40 MILLIGRAM, QW
     Dates: start: 20240823, end: 20240906
  34. DEXAMETHASONE [Suspect]
     Active Substance: DEXAMETHASONE
     Dosage: 40 MILLIGRAM, QW
     Route: 065
     Dates: start: 20240823, end: 20240906
  35. DEXAMETHASONE [Suspect]
     Active Substance: DEXAMETHASONE
     Dosage: 40 MILLIGRAM, QW
     Dates: start: 20240823, end: 20240906
  36. DEXAMETHASONE [Suspect]
     Active Substance: DEXAMETHASONE
     Dosage: 40 MILLIGRAM, QW
     Route: 065
     Dates: start: 20240823, end: 20240906
  37. CARFILZOMIB [Concomitant]
     Active Substance: CARFILZOMIB
  38. CARFILZOMIB [Concomitant]
     Active Substance: CARFILZOMIB
     Route: 065
  39. CARFILZOMIB [Concomitant]
     Active Substance: CARFILZOMIB
     Route: 065
  40. CARFILZOMIB [Concomitant]
     Active Substance: CARFILZOMIB
  41. CYCLOPHOSPHAMIDE [Concomitant]
     Active Substance: CYCLOPHOSPHAMIDE
  42. CYCLOPHOSPHAMIDE [Concomitant]
     Active Substance: CYCLOPHOSPHAMIDE
     Route: 065
  43. CYCLOPHOSPHAMIDE [Concomitant]
     Active Substance: CYCLOPHOSPHAMIDE
     Route: 065
  44. CYCLOPHOSPHAMIDE [Concomitant]
     Active Substance: CYCLOPHOSPHAMIDE
  45. DEXAMETHASONE [Concomitant]
     Active Substance: DEXAMETHASONE
  46. DEXAMETHASONE [Concomitant]
     Active Substance: DEXAMETHASONE
     Route: 065
  47. DEXAMETHASONE [Concomitant]
     Active Substance: DEXAMETHASONE
     Route: 065
  48. DEXAMETHASONE [Concomitant]
     Active Substance: DEXAMETHASONE
  49. AVATROMBOPAG [Concomitant]
     Active Substance: AVATROMBOPAG
  50. AVATROMBOPAG [Concomitant]
     Active Substance: AVATROMBOPAG
     Route: 065
  51. AVATROMBOPAG [Concomitant]
     Active Substance: AVATROMBOPAG
     Route: 065
  52. AVATROMBOPAG [Concomitant]
     Active Substance: AVATROMBOPAG
  53. PRIVIGEN [Concomitant]
     Active Substance: HUMAN IMMUNOGLOBULIN G
     Indication: Hypogammaglobulinaemia
     Dates: start: 20230111, end: 20241106
  54. PRIVIGEN [Concomitant]
     Active Substance: HUMAN IMMUNOGLOBULIN G
     Route: 065
     Dates: start: 20230111, end: 20241106
  55. PRIVIGEN [Concomitant]
     Active Substance: HUMAN IMMUNOGLOBULIN G
     Route: 065
     Dates: start: 20230111, end: 20241106
  56. PRIVIGEN [Concomitant]
     Active Substance: HUMAN IMMUNOGLOBULIN G
     Dates: start: 20230111, end: 20241106

REACTIONS (7)
  - Acute respiratory failure [Fatal]
  - Respiratory tract infection [Fatal]
  - Pneumonia [Recovered/Resolved]
  - Infectious pleural effusion [Recovered/Resolved]
  - Febrile neutropenia [Recovered/Resolved]
  - Neutrophil count decreased [Recovered/Resolved]
  - Platelet count decreased [Recovered/Resolved]

NARRATIVE: CASE EVENT DATE: 20240718
